FAERS Safety Report 4471095-4 (Version None)
Quarter: 2004Q4

REPORT INFORMATION
  Report Type: 
  Country: None (occurrence: None)
  Receive Date: 20041011
  Receipt Date: 20041004
  Transmission Date: 20050328
  Serious: Yes (Hospitalization)
  Sender: FDA-Public Use
  Company Number: PHBS2004IT13288

PATIENT
  Age: 73 Year
  Sex: Male

DRUGS (3)
  1. TOLEP [Suspect]
     Indication: EPILEPSY
     Dosage: 2100 MG/DAY
     Route: 048
     Dates: start: 20040202, end: 20040926
  2. FUROSEMIDE [Concomitant]
     Indication: MYOCARDIAL ISCHAEMIA
     Dosage: 25 MG/DAY SINCE 3 YRS
     Route: 048
  3. WARFARIN SODIUM [Concomitant]
     Indication: ARRHYTHMIA
     Dosage: UNK, UNK SINCE 10 YRS
     Route: 048

REACTIONS (2)
  - HYPONATRAEMIA [None]
  - INAPPROPRIATE ANTIDIURETIC HORMONE SECRETION [None]
